FAERS Safety Report 12411504 (Version 2)
Quarter: 2016Q2

REPORT INFORMATION
  Report Type: Report from Study
  Country: JP (occurrence: JP)
  Receive Date: 20160527
  Receipt Date: 20160629
  Transmission Date: 20160815
  Serious: Yes (Death, Life-Threatening, Hospitalization, Other)
  Sender: FDA-Public Use
  Company Number: JP-BRISTOL-MYERS SQUIBB COMPANY-BMS-2016-040958

PATIENT
  Age: 81 Year
  Sex: Male
  Weight: 68 kg

DRUGS (9)
  1. APIXABAN [Suspect]
     Active Substance: APIXABAN
     Indication: CEREBROVASCULAR ACCIDENT PROPHYLAXIS
     Dosage: 2.5 MG, BID
     Route: 048
     Dates: start: 20140430, end: 20140906
  2. TAKEPRON [Concomitant]
     Active Substance: LANSOPRAZOLE
     Indication: PROPHYLAXIS
     Dosage: 15 MG, QD
     Route: 048
     Dates: end: 2014
  3. CRESTOR [Concomitant]
     Active Substance: ROSUVASTATIN CALCIUM
     Indication: DYSLIPIDAEMIA
     Dosage: 2.5 MG, QD
     Route: 048
     Dates: end: 2014
  4. ITOROL [Concomitant]
     Active Substance: ISOSORBIDE MONONITRATE
     Indication: CARDIAC FAILURE CONGESTIVE
     Dosage: 20 MG, QD
     Route: 048
     Dates: end: 2014
  5. ALOSITOL [Concomitant]
     Active Substance: ALLOPURINOL
     Indication: PROPHYLAXIS
     Dosage: UNK
     Route: 048
     Dates: end: 2014
  6. LASIX [Concomitant]
     Active Substance: FUROSEMIDE
     Indication: CARDIAC FAILURE CONGESTIVE
     Dosage: 20 MG, QD
     Route: 048
     Dates: end: 2014
  7. DIGOSIN [Concomitant]
     Active Substance: DIGOXIN
     Indication: CARDIAC FAILURE CONGESTIVE
     Dosage: 0.125 MG, QD
     Route: 048
     Dates: end: 2014
  8. CALBLOCK [Concomitant]
     Active Substance: AZELNIDIPINE
     Indication: ADVERSE EVENT
     Dosage: UNK
     Route: 048
     Dates: end: 2014
  9. OLMETEC [Concomitant]
     Active Substance: OLMESARTAN MEDOXOMIL
     Indication: ADVERSE EVENT
     Dosage: 20 MG, QD
     Route: 048
     Dates: end: 2014

REACTIONS (5)
  - Packed red blood cell transfusion [Unknown]
  - Cerebral infarction [Unknown]
  - Embolic stroke [Fatal]
  - Cardiac failure [Not Recovered/Not Resolved]
  - Diverticulitis intestinal haemorrhagic [Fatal]

NARRATIVE: CASE EVENT DATE: 20140906
